FAERS Safety Report 8506828-0 (Version None)
Quarter: 2012Q3

REPORT INFORMATION
  Report Type: 
  Country: None (occurrence: None)
  Receive Date: 20120712
  Receipt Date: 20120621
  Transmission Date: 20120928
  Serious: No
  Sender: FDA-Public Use
  Company Number: JP-BRISTOL-MYERS SQUIBB COMPANY-16659039

PATIENT
  Age: 63 Year
  Sex: Male

DRUGS (4)
  1. FLUOROURACIL [Concomitant]
     Indication: COLON CANCER
     Dosage: IV INF
     Route: 042
  2. ERBITUX [Suspect]
     Indication: COLON CANCER
     Route: 042
  3. OXALIPLATIN [Concomitant]
     Indication: COLON CANCER
     Dosage: IV INF
     Route: 042
  4. LEUCOVORIN CALCIUM [Concomitant]
     Indication: COLON CANCER
     Dosage: IV INF
     Route: 042

REACTIONS (2)
  - PLATELET COUNT DECREASED [None]
  - HEPATIC FUNCTION ABNORMAL [None]
